FAERS Safety Report 4381779-4 (Version None)
Quarter: 2004Q2

REPORT INFORMATION
  Report Type: 
  Country: None (occurrence: None)
  Receive Date: 20040615
  Receipt Date: 20040603
  Transmission Date: 20050107
  Serious: Yes (Hospitalization)
  Sender: FDA-Public Use
  Company Number: 139076USA

PATIENT
  Age: 69 Year
  Sex: Male

DRUGS (11)
  1. FLUOROURACIL [Suspect]
     Indication: COLORECTAL CANCER
     Dosage: 1080 MILLIGRAM INTRAVENOUS (NOS)
     Route: 042
     Dates: start: 20040421, end: 20040421
  2. CETUXIMAB [Suspect]
     Indication: COLORECTAL CANCER
     Dosage: 450 MILLIGRAM INTRAVENOUS (NOS)
     Route: 042
     Dates: start: 20040421, end: 20040421
  3. OXALIPLATIN [Suspect]
     Indication: COLORECTAL CANCER
     Dosage: 153 MILLIGRAM INTRAVENOUS (NOS)
     Route: 042
     Dates: start: 20040421, end: 20040421
  4. LEUCOVORIN [Suspect]
     Dosage: 160 MILLIGRAM INTRAVENOUS (NOS)
     Route: 042
     Dates: start: 20040421, end: 20040421
  5. LOVENOX [Concomitant]
  6. NEUPOGEN [Concomitant]
  7. ACYCLOVIR [Suspect]
  8. MINOCYCLINE [Concomitant]
  9. LOPERAMIDE HCL [Concomitant]
  10. PROZAC [Concomitant]
  11. PRAZOSIN HCL [Suspect]
     Dates: start: 19990215

REACTIONS (3)
  - BLOOD POTASSIUM DECREASED [None]
  - HERPES OESOPHAGITIS [None]
  - PNEUMONIA [None]
